FAERS Safety Report 5684822-5 (Version None)
Quarter: 2008Q1

REPORT INFORMATION
  Report Type: 
  Country: None (occurrence: None)
  Receive Date: 20080328
  Receipt Date: 20071114
  Transmission Date: 20080703
  Serious: Yes (Death)
  Sender: FDA-Public Use
  Company Number: US-BRISTOL-MYERS SQUIBB COMPANY-13945860

PATIENT
  Age: 89 Year
  Sex: Male

DRUGS (1)
  1. ERBITUX [Suspect]
     Indication: LUNG NEOPLASM MALIGNANT
     Dosage: TAKEN 752 MG X 1 DOSE AND 470 MG X 43 DOSES.
     Route: 042
     Dates: start: 20060829, end: 20071004

REACTIONS (1)
  - ACUTE MYOCARDIAL INFARCTION [None]
